FAERS Safety Report 7469210-3 (Version None)
Quarter: 2011Q2

REPORT INFORMATION
  Report Type: 
  Country: None (occurrence: None)
  Receive Date: 20110510
  Receipt Date: 20110427
  Transmission Date: 20111010
  Serious: Yes (Other)
  Sender: FDA-Public Use
  Company Number: JP-JNJFOC-20110500303

PATIENT

DRUGS (3)
  1. UNSPECIFIED COLD MEDICATION [Concomitant]
     Route: 065
  2. MUCODYNE [Concomitant]
     Route: 048
  3. GALANTAMINE HYDROBROMIDE [Suspect]
     Indication: PRODUCT USED FOR UNKNOWN INDICATION
     Route: 048

REACTIONS (1)
  - PNEUMONIA [None]
